FAERS Safety Report 7908958-0 (Version None)
Quarter: 2011Q4

REPORT INFORMATION
  Report Type: 
  Country: None (occurrence: None)
  Receive Date: 20111111
  Receipt Date: 20111031
  Transmission Date: 20120403
  Serious: Yes (Other)
  Sender: FDA-Public Use
  Company Number: AU-CUBIST-2011S1000737

PATIENT
  Age: 17 Year
  Sex: Female

DRUGS (1)
  1. CUBICIN [Suspect]
     Indication: ENTEROCOCCAL INFECTION
     Dosage: DOSE UNIT:U UNKNOWN
     Route: 065
     Dates: start: 20111013

REACTIONS (2)
  - LEUKOPENIA [None]
  - NEUTROPENIA [None]
